APPROVED DRUG PRODUCT: LORAZEPAM
Active Ingredient: LORAZEPAM
Strength: 0.5MG
Dosage Form/Route: TABLET;ORAL
Application: A077396 | Product #001 | TE Code: AB
Applicant: ANI PHARMACEUTICALS INC
Approved: Dec 13, 2006 | RLD: No | RS: No | Type: RX